FAERS Safety Report 24399058 (Version 1)
Quarter: 2024Q4

REPORT INFORMATION
  Report Type: Spontaneous
  Country: DE (occurrence: CA)
  Receive Date: 20241004
  Receipt Date: 20241004
  Transmission Date: 20250115
  Serious: Yes (Death, Life-Threatening, Hospitalization, Disabling, Other)
  Sender: BAUSCH AND LOMB
  Company Number: DE-SANDOZ-SDZ2024DE083126

PATIENT
  Age: 80 Year
  Sex: Male
  Weight: 69 kg

DRUGS (87)
  1. HYDROCORTISONE [Suspect]
     Active Substance: HYDROCORTISONE
     Indication: Angioedema
     Dosage: HYDROCORTISONE ACETATE
     Route: 065
  2. HYDROCORTISONE [Suspect]
     Active Substance: HYDROCORTISONE
     Indication: Product used for unknown indication
     Dosage: 100 MG
     Route: 065
  3. ALBUTEROL [Suspect]
     Active Substance: ALBUTEROL
     Indication: Product used for unknown indication
     Dosage: ROUTE OF ADMIN (FREE TEXT): RESPIRATORY (INHALATION)
     Route: 055
  4. ALBUTEROL [Suspect]
     Active Substance: ALBUTEROL
     Indication: Chronic obstructive pulmonary disease
     Dosage: ROUTE OF ADMIN (FREE TEXT): RESPIRATORY (INHALATION)
     Route: 055
  5. ALBUTEROL [Suspect]
     Active Substance: ALBUTEROL
     Indication: Thrombosis
     Dosage: ROUTE OF ADMIN (FREE TEXT): RESPIRATORY (INHALATION)
     Route: 055
  6. ALBUTEROL [Suspect]
     Active Substance: ALBUTEROL
     Indication: Product used for unknown indication
     Dosage: QD
     Route: 050
  7. ALBUTEROL [Suspect]
     Active Substance: ALBUTEROL
     Indication: Chronic obstructive pulmonary disease
     Dosage: 2.5 ML, QD
     Route: 065
  8. ALBUTEROL [Suspect]
     Active Substance: ALBUTEROL
     Indication: Thrombosis
     Dosage: 4 DF, QD
     Route: 065
  9. ALBUTEROL [Suspect]
     Active Substance: ALBUTEROL
     Dosage: UNK
     Route: 065
  10. ALBUTEROL [Suspect]
     Active Substance: ALBUTEROL
     Dosage: UNK
     Route: 065
  11. ALBUTEROL [Suspect]
     Active Substance: ALBUTEROL
     Dosage: 2.5 ML
     Route: 065
  12. ALBUTEROL [Suspect]
     Active Substance: ALBUTEROL
     Route: 065
  13. ALBUTEROL [Suspect]
     Active Substance: ALBUTEROL
     Dosage: DOSAGE TEXT: 2.5 ML, PRN (4GM/100ML SOLUTION UNASSIGNED)
     Route: 065
  14. ALBUTEROL [Suspect]
     Active Substance: ALBUTEROL
     Route: 050
  15. ALBUTEROL [Suspect]
     Active Substance: ALBUTEROL
     Route: 065
  16. ALBUTEROL [Suspect]
     Active Substance: ALBUTEROL
     Route: 065
  17. GABAPENTIN [Suspect]
     Active Substance: GABAPENTIN
     Indication: Off label use
     Dosage: DOSAGE TEXT: THERAPY START DATE ASKU, THERAPY END DATE ASKU
     Route: 048
  18. GABAPENTIN [Suspect]
     Active Substance: GABAPENTIN
     Indication: Neuralgia
     Dosage: UNK
     Route: 048
  19. GABAPENTIN [Suspect]
     Active Substance: GABAPENTIN
     Indication: Intentional product misuse
     Dosage: 100 MG, QD
     Route: 048
  20. GABAPENTIN [Suspect]
     Active Substance: GABAPENTIN
     Indication: Bacterial infection
     Dosage: UNK
     Route: 048
  21. GABAPENTIN [Suspect]
     Active Substance: GABAPENTIN
     Indication: Product used for unknown indication
     Dosage: 10 MG, QD
     Route: 048
  22. CEFTRIAXONE [Suspect]
     Active Substance: CEFTRIAXONE
     Indication: Bacterial infection
     Dosage: 2 G
     Route: 042
  23. CEFTRIAXONE [Suspect]
     Active Substance: CEFTRIAXONE
     Indication: Product used for unknown indication
     Dosage: CEFTRIAXONE SODIUM, DOSAGE TEXT: THERAPY START DATE ASKU, THERAPY END DATE ASKU
     Route: 042
  24. CEFTRIAXONE [Suspect]
     Active Substance: CEFTRIAXONE
     Dosage: 2 MG
     Route: 042
  25. CEFTRIAXONE [Suspect]
     Active Substance: CEFTRIAXONE
     Dosage: UNK
     Route: 042
  26. CEFTRIAXONE [Suspect]
     Active Substance: CEFTRIAXONE
     Dosage: QD
     Route: 042
  27. CEFTRIAXONE [Suspect]
     Active Substance: CEFTRIAXONE
     Dosage: 2 G, QD
     Route: 042
  28. CEFTRIAXONE [Suspect]
     Active Substance: CEFTRIAXONE
     Dosage: UNK
     Route: 042
  29. CEFTRIAXONE [Suspect]
     Active Substance: CEFTRIAXONE
     Dosage: 2 G
     Route: 042
  30. CEFTRIAXONE [Suspect]
     Active Substance: CEFTRIAXONE
     Route: 042
  31. ONDANSETRON [Suspect]
     Active Substance: ONDANSETRON
     Indication: Vomiting
     Dosage: 4 MG, QD
     Route: 042
  32. ONDANSETRON [Suspect]
     Active Substance: ONDANSETRON
     Indication: Off label use
     Dosage: 8 MG, TID
     Route: 042
  33. ONDANSETRON [Suspect]
     Active Substance: ONDANSETRON
     Indication: Vomiting
     Dosage: 12 MG
     Route: 042
  34. ONDANSETRON [Suspect]
     Active Substance: ONDANSETRON
     Indication: Product used for unknown indication
     Route: 042
  35. ONDANSETRON [Suspect]
     Active Substance: ONDANSETRON
     Dosage: 40 MG
     Route: 042
  36. ONDANSETRON [Suspect]
     Active Substance: ONDANSETRON
     Dosage: 4 MG
     Route: 042
  37. ONDANSETRON [Suspect]
     Active Substance: ONDANSETRON
     Dosage: 12 MG, TID
     Route: 042
  38. ONDANSETRON [Suspect]
     Active Substance: ONDANSETRON
     Dosage: 12 MG
     Route: 065
  39. ONDANSETRON [Suspect]
     Active Substance: ONDANSETRON
     Dosage: 12 MG, TID
     Route: 042
  40. ONDANSETRON [Suspect]
     Active Substance: ONDANSETRON
     Dosage: 24 MG
     Route: 065
  41. ONDANSETRON [Suspect]
     Active Substance: ONDANSETRON
     Dosage: 36 MG
     Route: 042
  42. ONDANSETRON [Suspect]
     Active Substance: ONDANSETRON
     Dosage: 41.14 MG
     Route: 042
  43. ONDANSETRON [Suspect]
     Active Substance: ONDANSETRON
     Dosage: 36 MG
     Route: 042
  44. ONDANSETRON [Suspect]
     Active Substance: ONDANSETRON
     Dosage: 4 MG, TID
     Route: 042
  45. ONDANSETRON [Suspect]
     Active Substance: ONDANSETRON
     Dosage: 4 MG, TID
     Route: 042
  46. ONDANSETRON [Suspect]
     Active Substance: ONDANSETRON
     Route: 042
  47. ONDANSETRON [Suspect]
     Active Substance: ONDANSETRON
     Dosage: 40 MG
  48. ONDANSETRON [Suspect]
     Active Substance: ONDANSETRON
     Dosage: 1 DF, TID
     Route: 042
  49. ONDANSETRON [Suspect]
     Active Substance: ONDANSETRON
     Dosage: 1 DF
     Route: 042
  50. LANSOPRAZOLE [Suspect]
     Active Substance: LANSOPRAZOLE
     Indication: Intentional product misuse
     Dosage: 30 MG, QD
     Route: 048
  51. LANSOPRAZOLE [Suspect]
     Active Substance: LANSOPRAZOLE
     Indication: Product used for unknown indication
     Dosage: 30 MG, QD
     Route: 048
  52. LANSOPRAZOLE [Suspect]
     Active Substance: LANSOPRAZOLE
     Indication: Antacid therapy
     Dosage: 30 MG, QD
     Route: 048
  53. LANSOPRAZOLE [Suspect]
     Active Substance: LANSOPRAZOLE
     Indication: Off label use
     Dosage: UNK
     Route: 065
  54. LANSOPRAZOLE [Suspect]
     Active Substance: LANSOPRAZOLE
     Dosage: 30 MG, QD
     Route: 048
  55. LANSOPRAZOLE [Suspect]
     Active Substance: LANSOPRAZOLE
     Dosage: 30 MG, QD
     Route: 048
  56. XYLOMETAZOLINE [Suspect]
     Active Substance: XYLOMETAZOLINE
     Indication: Dyspnoea
     Dosage: UNK
     Route: 065
  57. SIMVASTATIN [Suspect]
     Active Substance: SIMVASTATIN
     Indication: Vitamin supplementation
     Route: 048
  58. SIMVASTATIN [Suspect]
     Active Substance: SIMVASTATIN
     Indication: Blood cholesterol increased
     Dosage: 40 MG, QD
     Route: 048
  59. SIMVASTATIN [Suspect]
     Active Substance: SIMVASTATIN
     Indication: Off label use
     Dosage: UNK
     Route: 048
  60. SIMVASTATIN [Suspect]
     Active Substance: SIMVASTATIN
     Indication: Product used for unknown indication
     Dosage: UNK
     Route: 065
  61. SIMVASTATIN [Suspect]
     Active Substance: SIMVASTATIN
     Dosage: 40 MG, QD
     Route: 048
  62. METAMIZOLE SODIUM [Suspect]
     Active Substance: METAMIZOLE SODIUM
     Indication: Vitamin supplementation
     Dosage: 5 MG, QD
     Route: 042
  63. METAMIZOLE SODIUM [Suspect]
     Active Substance: METAMIZOLE SODIUM
     Indication: Intentional product misuse
  64. HYDROMORPHONE [Suspect]
     Active Substance: HYDROMORPHONE
     Indication: Product used for unknown indication
     Dosage: 1 MG
     Route: 058
  65. HYDROMORPHONE [Suspect]
     Active Substance: HYDROMORPHONE
     Indication: Analgesic therapy
     Dosage: 1 MG
     Route: 058
  66. HYDROMORPHONE [Suspect]
     Active Substance: HYDROMORPHONE
     Dosage: 6 MG, QID
     Route: 058
  67. HYDROMORPHONE [Suspect]
     Active Substance: HYDROMORPHONE
     Dosage: 1 MG
     Route: 058
  68. HYDROMORPHONE [Suspect]
     Active Substance: HYDROMORPHONE
     Dosage: 6 MG
     Route: 058
  69. HYDROMORPHONE [Suspect]
     Active Substance: HYDROMORPHONE
     Dosage: 1 MG
     Route: 058
  70. HYDROMORPHONE [Suspect]
     Active Substance: HYDROMORPHONE
     Dosage: 250 MG, QD
     Route: 042
  71. AMIODARONE [Suspect]
     Active Substance: AMIODARONE
     Indication: Drug therapy
     Route: 065
  72. AMIODARONE [Suspect]
     Active Substance: AMIODARONE
     Indication: Ventricular fibrillation
     Dosage: UNK
     Route: 065
  73. AMIODARONE [Suspect]
     Active Substance: AMIODARONE
     Dosage: 150 MG, QD
     Route: 065
  74. AMIODARONE [Suspect]
     Active Substance: AMIODARONE
     Dosage: 150 MG
     Route: 042
  75. AMIODARONE [Suspect]
     Active Substance: AMIODARONE
     Dosage: QD
     Route: 042
  76. AMIODARONE [Suspect]
     Active Substance: AMIODARONE
     Dosage: 150 MG, QD
     Route: 042
  77. AMIODARONE [Suspect]
     Active Substance: AMIODARONE
     Route: 065
  78. AMIODARONE HYDROCHLORIDE [Suspect]
     Active Substance: AMIODARONE HYDROCHLORIDE
     Indication: Off label use
     Dosage: 150 MG, QD
     Route: 065
  79. AMIODARONE HYDROCHLORIDE [Suspect]
     Active Substance: AMIODARONE HYDROCHLORIDE
     Indication: Drug therapy
     Dosage: UNK, QD
     Route: 065
  80. AMIODARONE HYDROCHLORIDE [Suspect]
     Active Substance: AMIODARONE HYDROCHLORIDE
     Indication: Product used for unknown indication
     Dosage: UNK, QD
     Route: 042
  81. AMIODARONE HYDROCHLORIDE [Suspect]
     Active Substance: AMIODARONE HYDROCHLORIDE
     Indication: Intentional product misuse
     Dosage: 150 UG, QD
     Route: 042
  82. AMIODARONE HYDROCHLORIDE [Suspect]
     Active Substance: AMIODARONE HYDROCHLORIDE
     Indication: Ventricular fibrillation
     Dosage: 150 UG, QD
     Route: 042
  83. AMIODARONE HYDROCHLORIDE [Suspect]
     Active Substance: AMIODARONE HYDROCHLORIDE
     Dosage: 150 UG, QD
     Route: 042
  84. AMIODARONE HYDROCHLORIDE [Suspect]
     Active Substance: AMIODARONE HYDROCHLORIDE
     Dosage: UNK, QD
     Route: 042
  85. AMIODARONE HYDROCHLORIDE [Suspect]
     Active Substance: AMIODARONE HYDROCHLORIDE
     Dosage: UNK, QD
     Route: 042
  86. AMIODARONE HYDROCHLORIDE [Suspect]
     Active Substance: AMIODARONE HYDROCHLORIDE
     Dosage: 150 MG, QD
     Route: 042
  87. AMIODARONE HYDROCHLORIDE [Suspect]
     Active Substance: AMIODARONE HYDROCHLORIDE
     Dosage: 150 UG, QD
     Route: 042

REACTIONS (9)
  - Appendicolith [Fatal]
  - Somnolence [Fatal]
  - Multiple organ dysfunction syndrome [Fatal]
  - Blood cholesterol increased [Fatal]
  - Chronic obstructive pulmonary disease [Fatal]
  - Appendicitis [Fatal]
  - Cardiogenic shock [Fatal]
  - Nausea [Fatal]
  - Intentional product misuse [Fatal]
